FAERS Safety Report 5467976-5 (Version None)
Quarter: 2007Q3

REPORT INFORMATION
  Report Type: 
  Country: None (occurrence: None)
  Receive Date: 20070925
  Receipt Date: 20070925
  Transmission Date: 20080115
  Serious: Yes (Other)
  Sender: FDA-Public Use
  Company Number: None

PATIENT
  Age: 60 Year
  Sex: Female
  Weight: 53.0709 kg

DRUGS (1)
  1. CIPROFLOXACIN [Suspect]
     Indication: URINARY TRACT INFECTION
     Dosage: 500MG 2/DAY ORAL
     Route: 048
     Dates: start: 20070806, end: 20070810

REACTIONS (8)
  - ARTHRALGIA [None]
  - ASTHENIA [None]
  - COORDINATION ABNORMAL [None]
  - INSOMNIA [None]
  - MYALGIA [None]
  - NIGHTMARE [None]
  - STOMACH DISCOMFORT [None]
  - TENDON PAIN [None]
